FAERS Safety Report 9395626 (Version 1)
Quarter: 2013Q3

REPORT INFORMATION
  Report Type: Spontaneous
  Country: US (occurrence: US)
  Receive Date: 20130711
  Receipt Date: 20130711
  Transmission Date: 20140515
  Serious: No
  Sender: FDA-Public Use
  Company Number: US-ASTELLAS-2013US007228

PATIENT
  Age: 79 Year
  Sex: Female

DRUGS (2)
  1. MYRBETRIQ [Suspect]
     Indication: PRODUCT USED FOR UNKNOWN INDICATION
     Dosage: 25 MG, UID/QD
     Route: 048
     Dates: start: 20130625
  2. MYRBETRIQ [Suspect]
     Dosage: 25 MG, 1 IN MORNING 1 IN EVENING
     Route: 048
     Dates: start: 20130627

REACTIONS (1)
  - Extra dose administered [Unknown]
